FAERS Safety Report 8809664 (Version 2)
Quarter: 2015Q2

REPORT INFORMATION
  Report Type: Report from Study
  Country: US (occurrence: US)
  Receive Date: 20120926
  Receipt Date: 20150625
  Transmission Date: 20150821
  Serious: Yes (Death, Hospitalization)
  Sender: FDA-Public Use
  Company Number: US-ROCHE-1127775

PATIENT
  Sex: Female

DRUGS (19)
  1. PROCRIT [Concomitant]
     Active Substance: ERYTHROPOIETIN
     Route: 065
  2. COUMADIN [Concomitant]
     Active Substance: WARFARIN SODIUM
  3. NEXIUM [Concomitant]
     Active Substance: ESOMEPRAZOLE MAGNESIUM
  4. HERCEPTIN [Suspect]
     Active Substance: TRASTUZUMAB
     Indication: OVARIAN CANCER
     Route: 065
     Dates: start: 20030626
  5. GEMZAR [Concomitant]
     Active Substance: GEMCITABINE HYDROCHLORIDE
  6. TAXOL [Concomitant]
     Active Substance: PACLITAXEL
     Route: 065
  7. ZOFRAN [Concomitant]
     Active Substance: ONDANSETRON HYDROCHLORIDE
  8. DURAGESIC [Concomitant]
     Active Substance: FENTANYL
  9. MOTRIN [Concomitant]
     Active Substance: IBUPROFEN
  10. TAXOTERE [Concomitant]
     Active Substance: DOCETAXEL
  11. ATIVAN [Concomitant]
     Active Substance: LORAZEPAM
  12. DECADRON [Concomitant]
     Active Substance: DEXAMETHASONE
  13. KYTRIL [Concomitant]
     Active Substance: GRANISETRON HYDROCHLORIDE
     Route: 065
  14. ANZEMET [Concomitant]
     Active Substance: DOLASETRON MESYLATE
  15. ARANESP [Concomitant]
     Active Substance: DARBEPOETIN ALFA
  16. ROCEPHIN [Concomitant]
     Active Substance: CEFTRIAXONE SODIUM
     Route: 065
  17. PROMETHAZINE [Concomitant]
     Active Substance: PROMETHAZINE\PROMETHAZINE HYDROCHLORIDE
  18. HERCEPTIN [Suspect]
     Active Substance: TRASTUZUMAB
     Route: 065
  19. AMBIEN [Concomitant]
     Active Substance: ZOLPIDEM TARTRATE

REACTIONS (15)
  - Fatigue [Unknown]
  - Blood urine present [Not Recovered/Not Resolved]
  - Oedema [Unknown]
  - Depressed mood [Unknown]
  - Dizziness [Unknown]
  - Diarrhoea [Unknown]
  - Off label use [Unknown]
  - Vomiting [Unknown]
  - Decreased appetite [Unknown]
  - Death [Fatal]
  - Abdominal wall infection [Unknown]
  - Abdominal distension [Unknown]
  - Anaemia [Unknown]
  - Dehydration [Unknown]
  - Nausea [Unknown]
